FAERS Safety Report 17264290 (Version 6)
Quarter: 2020Q1

REPORT INFORMATION
  Report Type: Spontaneous
  Country: US (occurrence: US)
  Receive Date: 20200113
  Receipt Date: 20200309
  Transmission Date: 20200409
  Serious: Yes (Other)
  Sender: FDA-Public Use
  Company Number: US-ACTELION-A-NJ2020-200173

PATIENT
  Sex: Female
  Weight: 54.88 kg

DRUGS (6)
  1. UPTRAVI [Suspect]
     Active Substance: SELEXIPAG
     Dosage: 200 MCG, BID
     Route: 048
  2. UPTRAVI [Suspect]
     Active Substance: SELEXIPAG
     Dosage: 400 MCG, BID
     Route: 048
  3. TADALAFIL. [Concomitant]
     Active Substance: TADALAFIL
  4. UPTRAVI [Suspect]
     Active Substance: SELEXIPAG
     Dosage: 200 MCG
     Route: 048
  5. LETAIRIS [Concomitant]
     Active Substance: AMBRISENTAN
  6. UPTRAVI [Suspect]
     Active Substance: SELEXIPAG
     Indication: PULMONARY ARTERIAL HYPERTENSION
     Dosage: 600 MCG, BID
     Route: 048

REACTIONS (14)
  - Pain in jaw [Unknown]
  - Myalgia [Unknown]
  - Nasal congestion [Unknown]
  - Terminal state [Unknown]
  - Insomnia [Unknown]
  - Sinusitis [Unknown]
  - Cough [Unknown]
  - Back pain [Unknown]
  - Gout [Unknown]
  - Pain in extremity [Unknown]
  - Arthralgia [Unknown]
  - Rhinorrhoea [Unknown]
  - Liver function test increased [Unknown]
  - Fatigue [Unknown]
